FAERS Safety Report 14210925 (Version 1)
Quarter: 2017Q4

REPORT INFORMATION
  Report Type: Report from Study
  Country: CA (occurrence: CA)
  Receive Date: 20171121
  Receipt Date: 20171121
  Transmission Date: 20180321
  Serious: Yes (Death, Hospitalization)
  Sender: FDA-Public Use
  Company Number: CA-NOVOPROD-572664

PATIENT
  Age: 69 Year
  Sex: Male

DRUGS (3)
  1. NOVOLIN GE NPH [Suspect]
     Active Substance: INSULIN BEEF
     Dosage: 10 U, BID
     Route: 058
     Dates: start: 20161003
  2. HUMALOG [Suspect]
     Active Substance: INSULIN LISPRO
     Indication: TYPE 1 DIABETES MELLITUS
     Dosage: 8-12 UNITS AT BREAKFAST  10-12 UNITS AT LUNCH AND SUPPER (SINCE 03-OCT-2016)
     Route: 065
     Dates: start: 20161003
  3. NOVOLIN GE NPH [Suspect]
     Active Substance: INSULIN BEEF
     Indication: TYPE 1 DIABETES MELLITUS
     Dosage: UNK
     Route: 058

REACTIONS (2)
  - Cardiac arrest [Fatal]
  - Diabetic ketoacidosis [Recovering/Resolving]

NARRATIVE: CASE EVENT DATE: 20171107
